FAERS Safety Report 19151735 (Version 1)
Quarter: 2021Q2

REPORT INFORMATION
  Report Type: Spontaneous
  Country: US (occurrence: US)
  Receive Date: 20210419
  Receipt Date: 20210419
  Transmission Date: 20210717
  Serious: No
  Sender: FDA-Public Use
  Company Number: US-GLENMARK PHARMACEUTICALS-2021GMK052489

PATIENT

DRUGS (2)
  1. NORGESTIMATE AND ETHINYL ESTRADIOL TABLETS USP, 0.18 MG/0.035 MG, 0.21 [Suspect]
     Active Substance: ETHINYL ESTRADIOL\NORGESTIMATE
     Indication: MENSTRUATION IRREGULAR
     Dosage: 1 DOSAGE FORM, OD (AT NIGHT AT 6:00 PM)
     Route: 048
     Dates: start: 20210207
  2. NORGESTIMATE AND ETHINYL ESTRADIOL TABLETS USP, 0.18 MG/0.035 MG, 0.21 [Suspect]
     Active Substance: ETHINYL ESTRADIOL\NORGESTIMATE
     Indication: RASH

REACTIONS (2)
  - Product use in unapproved indication [Unknown]
  - Heavy menstrual bleeding [Not Recovered/Not Resolved]

NARRATIVE: CASE EVENT DATE: 20210207
